FAERS Safety Report 5765966-6 (Version None)
Quarter: 2008Q2

REPORT INFORMATION
  Report Type: 
  Country: None (occurrence: None)
  Receive Date: 20080611
  Receipt Date: 20080229
  Transmission Date: 20081010
  Serious: No
  Sender: FDA-Public Use
  Company Number: US-BRISTOL-MYERS SQUIBB COMPANY-14097182

PATIENT
  Sex: Female

DRUGS (1)
  1. SINEMET CR [Suspect]
     Dosage: 1DF=25/250 WITH NO UNITS, INTIALLY WAS ON CARBIDOPA+LEVODOPA 25/100
     Route: 048

REACTIONS (2)
  - NAUSEA [None]
  - VOMITING [None]
